FAERS Safety Report 21297069 (Version 1)
Quarter: 2022Q3

REPORT INFORMATION
  Report Type: Report from Study
  Country: ES (occurrence: ES)
  Receive Date: 20220906
  Receipt Date: 20220906
  Transmission Date: 20221027
  Serious: Yes (Other)
  Sender: FDA-Public Use
  Company Number: None

PATIENT
  Age: 3 Year
  Sex: Female

DRUGS (4)
  1. VINCRISTINE SULFATE [Suspect]
     Active Substance: VINCRISTINE SULFATE
     Indication: Precursor T-lymphoblastic leukaemia acute
     Dosage: VINCRISTINE SULFATE (809SU) ,
     Route: 065
     Dates: start: 20220627
  2. DAUNORUBICIN HYDROCHLORIDE [Suspect]
     Active Substance: DAUNORUBICIN HYDROCHLORIDE
     Indication: Precursor T-lymphoblastic leukaemia acute
     Dosage: DAUNORUBICIN HYDROCHLORIDE (177CH)
     Route: 065
     Dates: start: 20220627, end: 20220720
  3. PREDNISONE [Suspect]
     Active Substance: PREDNISONE
     Indication: Precursor T-lymphoblastic leukaemia acute
     Dosage: PREDNISONE (886A)
     Route: 065
     Dates: start: 20220627, end: 20220718
  4. SULFAMETHOXAZOLE\TRIMETHOPRIM [Concomitant]
     Active Substance: SULFAMETHOXAZOLE\TRIMETHOPRIM
     Indication: Antibiotic prophylaxis
     Dosage: 20 MG/100 MG , 100 TABLETS
     Dates: start: 20220620, end: 20220703

REACTIONS (1)
  - Hepatic lesion [Recovering/Resolving]

NARRATIVE: CASE EVENT DATE: 20220701
